FAERS Safety Report 6589611-5 (Version None)
Quarter: 2010Q1

REPORT INFORMATION
  Report Type: 
  Country: None (occurrence: None)
  Receive Date: 20100212
  Receipt Date: 20100202
  Transmission Date: 20100710
  Serious: Yes (Other)
  Sender: FDA-Public Use
  Company Number: 2010US000339

PATIENT

DRUGS (2)
  1. LEXISCAN [Suspect]
     Dosage: IV BOLUS
     Route: 040
  2. MYOVIEW [Suspect]
     Indication: SCAN MYOCARDIAL PERFUSION

REACTIONS (1)
  - RESPIRATORY ARREST [None]
